FAERS Safety Report 8293437-4 (Version None)
Quarter: 2012Q2

REPORT INFORMATION
  Report Type: 
  Country: None (occurrence: None)
  Receive Date: 20120417
  Receipt Date: 20120413
  Transmission Date: 20120825
  Serious: Yes (Life-Threatening, Hospitalization)
  Sender: FDA-Public Use
  Company Number: DE-MERCK-1204DEU00044

PATIENT
  Age: 71 Year
  Sex: Male
  Weight: 103 kg

DRUGS (4)
  1. VANCOMYCIN [Suspect]
     Route: 065
  2. MICAFUNGIN [Suspect]
     Route: 065
  3. PRIMAXIN [Suspect]
     Route: 041
  4. CEFTRIAXONE SODIUM [Suspect]
     Route: 065

REACTIONS (1)
  - SUBACUTE HEPATIC FAILURE [None]
